FAERS Safety Report 7090079-3 (Version None)
Quarter: 2010Q4

REPORT INFORMATION
  Report Type: 
  Country: None (occurrence: None)
  Receive Date: 20101104
  Receipt Date: 20101104
  Transmission Date: 20110411
  Serious: No
  Sender: FDA-Public Use
  Company Number: None

PATIENT
  Age: 24 Year
  Sex: Female

DRUGS (1)
  1. PPD [Suspect]

REACTIONS (4)
  - CELLULITIS [None]
  - INFUSION SITE ERYTHEMA [None]
  - INFUSION SITE NECROSIS [None]
  - INFUSION SITE PAIN [None]
